FAERS Safety Report 9216070 (Version 1)
Quarter: 2013Q2

REPORT INFORMATION
  Report Type: Spontaneous
  Country: DE (occurrence: None)
  Receive Date: 20130402
  Receipt Date: 20130402
  Transmission Date: 20140414
  Serious: Yes (Congenital Anomaly, Other)
  Sender: FDA-Public Use
  Company Number: GER/GER/13/0028794

PATIENT
  Sex: Male
  Weight: 1.85 kg

DRUGS (8)
  1. LAMOTRIGINE (LAMOTRIGINE) [Suspect]
     Indication: PRODUCT USED FOR UNKNOWN INDICATION
     Route: 064
     Dates: start: 20110916, end: 20120425
  2. NEOVIN (FOLIC ACID) [Concomitant]
  3. CELESTAN (BETAMETHASONE) [Concomitant]
  4. UTROGESTAN [Concomitant]
  5. IBUPROFEN (IBUPROFEN) [Concomitant]
  6. FRAGMIN P (DALTEPARIN SODIUM) [Concomitant]
  7. NIFEHEXAL (NIFEDIPINE) [Concomitant]
  8. TRACTCOCILE (ATOSIBAN ACETATE) [Concomitant]

REACTIONS (11)
  - Premature baby [None]
  - Transposition of the great vessels [None]
  - Maternal drugs affecting foetus [None]
  - Patent ductus arteriosus [None]
  - Atrial septal defect [None]
  - Neonatal respiratory distress syndrome [None]
  - Thrombosis [None]
  - Small intestinal perforation [None]
  - Food intolerance [None]
  - Breech presentation [None]
  - Caesarean section [None]
